FAERS Safety Report 17871620 (Version 1)
Quarter: 2020Q2

REPORT INFORMATION
  Report Type: Spontaneous
  Country: ZA (occurrence: ZA)
  Receive Date: 20200608
  Receipt Date: 20200608
  Transmission Date: 20200714
  Serious: Yes (Hospitalization)
  Sender: FDA-Public Use
  Company Number: ZA-GLAXOSMITHKLINE-ZA2020EME091530

PATIENT
  Sex: Female

DRUGS (4)
  1. JALRA [Concomitant]
     Active Substance: VILDAGLIPTIN
     Indication: DIABETES MELLITUS
     Dosage: 50 MG
     Route: 048
  2. WELLBUTRIN XL [Suspect]
     Active Substance: BUPROPION HYDROCHLORIDE
     Indication: DEPRESSION
     Dosage: 150 MG
     Route: 048
     Dates: end: 202005
  3. URBANOL [Concomitant]
     Active Substance: CLOBAZAM
     Indication: STRESS
     Dosage: 10 MG
     Route: 048
  4. ALTOSEC [Concomitant]
     Active Substance: OMEPRAZOLE
     Indication: ULCER
     Dosage: 20 MG
     Route: 048

REACTIONS (3)
  - Bladder dysfunction [Unknown]
  - Hospitalisation [Unknown]
  - Functional gastrointestinal disorder [Unknown]
